FAERS Safety Report 6122157-7 (Version None)
Quarter: 2009Q1

REPORT INFORMATION
  Report Type: 
  Country: None (occurrence: None)
  Receive Date: 20090318
  Receipt Date: 20090305
  Transmission Date: 20090719
  Serious: Yes (Other)
  Sender: FDA-Public Use
  Company Number: PHHY2008DE31956

PATIENT
  Age: 77 Year
  Sex: Female

DRUGS (8)
  1. LOCOL / XU [Suspect]
     Indication: HYPERCHOLESTEROLAEMIA
     Dosage: 40 MG/DAY
     Route: 048
     Dates: start: 20070512, end: 20070530
  2. LOCOL / XU [Suspect]
     Dosage: 80 MG/DAY
     Route: 048
     Dates: start: 20080531
  3. NORVASC [Suspect]
     Indication: HYPERTENSION
     Dosage: 5MG PER DAY
     Route: 048
     Dates: start: 20080501
  4. LORZAAR PLUS [Concomitant]
     Indication: HYPERTENSION
     Dosage: 50MG PER DAY
     Route: 048
     Dates: start: 20050101
  5. LORZAAR PLUS [Concomitant]
     Dosage: 12.5MG PER DAY
     Route: 048
  6. LORZAAR [Concomitant]
     Indication: HYPERTENSION
     Dosage: 50MG PER DAY
     Route: 048
     Dates: start: 20050101
  7. ASPIRIN 100 PROTECT [Concomitant]
     Indication: CEREBRAL DISORDER
     Dosage: 100MG PER DAY
     Dates: start: 20050101
  8. BELOC ZOK [Concomitant]
     Indication: HYPERTENSION
     Dosage: 50MG PER DAY
     Route: 048
     Dates: start: 20050101

REACTIONS (7)
  - ARTHRALGIA [None]
  - BLOOD URIC ACID INCREASED [None]
  - CARPAL TUNNEL SYNDROME [None]
  - FATIGUE [None]
  - HYPOKINESIA [None]
  - MYALGIA [None]
  - OEDEMA PERIPHERAL [None]
